FAERS Safety Report 7063058-X (Version None)
Quarter: 2010Q4

REPORT INFORMATION
  Report Type: 
  Country: None (occurrence: None)
  Receive Date: 20101026
  Receipt Date: 20100413
  Transmission Date: 20110411
  Serious: Yes (Other)
  Sender: FDA-Public Use
  Company Number: US-PFIZER INC-2010046931

PATIENT
  Sex: Male

DRUGS (3)
  1. LIPITOR [Suspect]
  2. PLAVIX [Concomitant]
  3. MULTI-VITAMINS [Concomitant]

REACTIONS (2)
  - MYALGIA [None]
  - PAIN IN EXTREMITY [None]
